FAERS Safety Report 8991931 (Version 1)
Quarter: 2012Q4

REPORT INFORMATION
  Report Type: Report from Study
  Country: BR (occurrence: BR)
  Receive Date: 20121231
  Receipt Date: 20121231
  Transmission Date: 20130627
  Serious: Yes (Hospitalization)
  Sender: FDA-Public Use
  Company Number: BR-ROCHE-1093524

PATIENT
  Age: 59 Year
  Sex: Female
  Weight: 64 kg

DRUGS (6)
  1. RITUXIMAB [Suspect]
     Indication: RHEUMATOID ARTHRITIS
     Route: 042
     Dates: start: 20120207, end: 20120227
  2. OMEPRAZOLE [Concomitant]
  3. PREDNISONE [Concomitant]
  4. METHOTREXAT [Concomitant]
     Route: 065
  5. FOLIC ACID [Concomitant]
  6. OYSTER CALCIUM [Concomitant]

REACTIONS (4)
  - Cyst [Recovered/Resolved]
  - Pain in extremity [Not Recovered/Not Resolved]
  - Pain in extremity [Not Recovered/Not Resolved]
  - Infusion related reaction [Recovered/Resolved]
